FAERS Safety Report 12427809 (Version 1)
Quarter: 2016Q2

REPORT INFORMATION
  Report Type: Spontaneous
  Country: US (occurrence: None)
  Receive Date: 20160601
  Receipt Date: 20160601
  Transmission Date: 20160815
  Serious: Yes (Disabling, Other)
  Sender: FDA-Public Use
  Company Number: None

PATIENT
  Age: 62 Year
  Sex: Female
  Weight: 77.11 kg

DRUGS (17)
  1. CLONAZEPAM. [Concomitant]
     Active Substance: CLONAZEPAM
  2. FOSAMAX [Concomitant]
     Active Substance: ALENDRONATE SODIUM
  3. MAGNESIUM PRN [Concomitant]
     Dosage: 90 TABLETS ONCE A DAY
     Route: 048
     Dates: start: 20160112, end: 20160130
  4. ESCITALOPRAM [Suspect]
     Active Substance: ESCITALOPRAM OXALATE
  5. LOSARTAN. [Concomitant]
     Active Substance: LOSARTAN
  6. HYDROCODONE [Concomitant]
     Active Substance: HYDROCODONE
  7. MYRBETRIQ ER [Concomitant]
  8. ALEVE [Concomitant]
     Active Substance: NAPROXEN SODIUM
  9. TYLENOL PRN [Concomitant]
  10. NEXIUM [Suspect]
     Active Substance: ESOMEPRAZOLE MAGNESIUM
  11. XOPENEX PRN [Concomitant]
  12. COLACE [Concomitant]
     Active Substance: DOCUSATE SODIUM
  13. LEXAPRO [Concomitant]
     Active Substance: ESCITALOPRAM OXALATE
  14. FLONASE [Concomitant]
     Active Substance: FLUTICASONE PROPIONATE
  15. ESTRACE [Concomitant]
     Active Substance: ESTRADIOL
  16. SINGULAIR [Concomitant]
     Active Substance: MONTELUKAST SODIUM
  17. CENTRUM SILVER WOMENS 50 PLUS (PFIZER) [Concomitant]
     Active Substance: MINERALS\VITAMINS

REACTIONS (9)
  - Infection [None]
  - Coordination abnormal [None]
  - Depression [None]
  - Viral infection [None]
  - Fatigue [None]
  - Loss of consciousness [None]
  - Tremor [None]
  - Suicidal ideation [None]
  - Product packaging quantity issue [None]

NARRATIVE: CASE EVENT DATE: 20160307
